FAERS Safety Report 18253273 (Version 1)
Quarter: 2020Q3

REPORT INFORMATION
  Report Type: Spontaneous
  Country: DE (occurrence: DE)
  Receive Date: 20200910
  Receipt Date: 20200910
  Transmission Date: 20201103
  Serious: Yes (Hospitalization)
  Sender: FDA-Public Use
  Company Number: NVSC2020DE245964

PATIENT
  Age: 16 Year
  Sex: Female
  Weight: 64 kg

DRUGS (5)
  1. RISPERIDON [Concomitant]
     Active Substance: RISPERIDONE
     Indication: BORDERLINE PERSONALITY DISORDER
     Dosage: 1 DF, QD
     Route: 048
  2. L?THYROXIN [Concomitant]
     Active Substance: LEVOTHYROXINE SODIUM
     Indication: HYPOTHYROIDISM
     Dosage: 0.5 DF, QD
     Route: 048
  3. LEVOMEPROMAZIN [Concomitant]
     Active Substance: LEVOMEPROMAZINE
     Indication: BORDERLINE PERSONALITY DISORDER
     Dosage: UNK
     Route: 048
  4. PARACETAMOL [Suspect]
     Active Substance: ACETAMINOPHEN
     Indication: INTENTIONAL SELF-INJURY
     Dosage: 4 DF, QD
     Route: 048
     Dates: start: 20191001
  5. CITALOPRAM [Concomitant]
     Active Substance: CITALOPRAM HYDROBROMIDE
     Indication: BORDERLINE PERSONALITY DISORDER
     Dosage: 1 DF, QD
     Route: 048

REACTIONS (2)
  - Intentional overdose [Unknown]
  - Toxicity to various agents [Unknown]

NARRATIVE: CASE EVENT DATE: 20191001
